FAERS Safety Report 7960118-3 (Version None)
Quarter: 2011Q4

REPORT INFORMATION
  Report Type: 
  Country: None (occurrence: None)
  Receive Date: 20111201
  Receipt Date: 20111115
  Transmission Date: 20120403
  Serious: Yes (Death)
  Sender: FDA-Public Use
  Company Number: 2009-010

PATIENT
  Age: 47 Year
  Sex: Male

DRUGS (11)
  1. TRAZODONE HCL [Concomitant]
  2. CONCERTA [Concomitant]
  3. ABILIFY [Concomitant]
  4. CELEXA [Concomitant]
  5. ZOMIG [Concomitant]
  6. ADDERALL XR (AMFETAMINE ASPARTATE, AMFETAMINE SULFATE, DEXAMFETAMINE S [Concomitant]
  7. ALPRAZOLAM [Concomitant]
  8. FAZACLO ODT [Suspect]
     Indication: SCHIZOPHRENIA, PARANOID TYPE
     Dosage: 300 MG, QD, ORAL
     Route: 048
     Dates: start: 20080418, end: 20090115
  9. FAZACLO ODT [Suspect]
     Indication: ATTENTION DEFICIT/HYPERACTIVITY DISORDER
     Dosage: 300 MG, QD, ORAL
     Route: 048
     Dates: start: 20080418, end: 20090115
  10. FAZACLO ODT [Suspect]
     Indication: PSYCHOTIC DISORDER
     Dosage: 300 MG, QD, ORAL
     Route: 048
     Dates: start: 20080418, end: 20090115
  11. LAMICTAL [Concomitant]

REACTIONS (1)
  - CHRONIC HEPATIC FAILURE [None]
